FAERS Safety Report 6985496-3 (Version None)
Quarter: 2010Q3

REPORT INFORMATION
  Report Type: 
  Country: None (occurrence: None)
  Receive Date: 20100915
  Receipt Date: 20100907
  Transmission Date: 20110219
  Serious: Yes (Death)
  Sender: FDA-Public Use
  Company Number: B0673923A

PATIENT
  Sex: Male

DRUGS (2)
  1. AVANDIA [Suspect]
  2. UNSPECIFIED DRUGS [Concomitant]
     Indication: PRODUCT USED FOR UNKNOWN INDICATION
     Route: 065

REACTIONS (3)
  - ADVERSE DRUG REACTION [None]
  - CORONARY ARTERY DISEASE [None]
  - SYNCOPE [None]
